FAERS Safety Report 8326176 (Version 21)
Quarter: 2017Q2

REPORT INFORMATION
  Report Type: Spontaneous
  Country: CA (occurrence: CA)
  Receive Date: 20120106
  Receipt Date: 20170511
  Transmission Date: 20170830
  Serious: Yes (Hospitalization, Other)
  Sender: FDA-Public Use
  Company Number: CA-ROCHE-1028047

PATIENT
  Age: 63 Year
  Sex: Female

DRUGS (18)
  1. XOLAIR [Suspect]
     Active Substance: OMALIZUMAB
     Dosage: UNK
     Route: 058
     Dates: start: 20160527
  2. XOLAIR [Suspect]
     Active Substance: OMALIZUMAB
     Dosage: UNK
     Route: 058
     Dates: start: 20161215
  3. XOLAIR [Suspect]
     Active Substance: OMALIZUMAB
     Route: 058
     Dates: start: 20170224
  4. XOLAIR [Suspect]
     Active Substance: OMALIZUMAB
     Dosage: UNK
     Route: 058
     Dates: start: 20160825
  5. XOLAIR [Suspect]
     Active Substance: OMALIZUMAB
     Route: 058
     Dates: start: 20170112
  6. VENTOLIN [Concomitant]
     Active Substance: ALBUTEROL SULFATE
     Indication: PRODUCT USED FOR UNKNOWN INDICATION
     Dosage: (TWICE PER WEEK)
     Route: 065
  7. XOLAIR [Suspect]
     Active Substance: OMALIZUMAB
     Dosage: UNK
     Route: 058
     Dates: start: 20161116
  8. XOLAIR [Suspect]
     Active Substance: OMALIZUMAB
     Route: 058
     Dates: start: 20170209
  9. XOLAIR [Suspect]
     Active Substance: OMALIZUMAB
     Dosage: UNK
     Route: 058
     Dates: start: 20160728
  10. SPIRIVA [Concomitant]
     Active Substance: TIOTROPIUM BROMIDE MONOHYDRATE
     Indication: PRODUCT USED FOR UNKNOWN INDICATION
     Route: 065
  11. XOLAIR [Suspect]
     Active Substance: OMALIZUMAB
     Route: 058
     Dates: start: 20170309
  12. ZENHALE [Concomitant]
     Active Substance: FORMOTEROL FUMARATE\MOMETASONE FUROATE
     Indication: PRODUCT USED FOR UNKNOWN INDICATION
     Dosage: 400 UG, BID
     Route: 065
  13. XOLAIR [Suspect]
     Active Substance: OMALIZUMAB
     Indication: ASTHMA
     Route: 058
     Dates: start: 20060118
  14. XOLAIR [Suspect]
     Active Substance: OMALIZUMAB
     Dosage: UNK
     Route: 058
     Dates: start: 20160429
  15. XOLAIR [Suspect]
     Active Substance: OMALIZUMAB
     Dosage: UNK
     Route: 058
     Dates: start: 20160624
  16. XOLAIR [Suspect]
     Active Substance: OMALIZUMAB
     Route: 058
     Dates: start: 20170406
  17. XOLAIR [Suspect]
     Active Substance: OMALIZUMAB
     Dosage: UNK
     Route: 058
     Dates: start: 20160205
  18. XOLAIR [Suspect]
     Active Substance: OMALIZUMAB
     Dosage: UNK
     Route: 058
     Dates: start: 20160401

REACTIONS (27)
  - Sinus disorder [Unknown]
  - Body temperature decreased [Unknown]
  - Sinus congestion [Recovering/Resolving]
  - Respiratory rate increased [Unknown]
  - Incorrect dose administered [Unknown]
  - Hypoventilation [Unknown]
  - Bronchitis [Recovered/Resolved]
  - Vision blurred [Unknown]
  - Sinusitis [Recovering/Resolving]
  - Oropharyngeal pain [Recovering/Resolving]
  - Pneumonia [Recovering/Resolving]
  - Bladder prolapse [Unknown]
  - Breath sounds abnormal [Unknown]
  - Fatigue [Unknown]
  - Nasal congestion [Unknown]
  - Productive cough [Unknown]
  - Lower respiratory tract infection [Recovering/Resolving]
  - Asthma [Unknown]
  - Uterine prolapse [Unknown]
  - Dyspnoea [Unknown]
  - Cough [Recovered/Resolved]
  - Wheezing [Unknown]
  - Viral upper respiratory tract infection [Unknown]
  - Secretion discharge [Unknown]
  - Infection susceptibility increased [Unknown]
  - Nasal discharge discolouration [Unknown]
  - Laryngitis [Recovering/Resolving]

NARRATIVE: CASE EVENT DATE: 20160227
